FAERS Safety Report 18952645 (Version 1)
Quarter: 2021Q1

REPORT INFORMATION
  Report Type: Spontaneous
  Country: US (occurrence: US)
  Receive Date: 20210301
  Receipt Date: 20210301
  Transmission Date: 20210420
  Serious: Yes (Hospitalization, Other)
  Sender: FDA-Public Use
  Company Number: US-DRREDDYS-USA/USA/21/0132326

PATIENT
  Age: 64 Year
  Sex: Female

DRUGS (6)
  1. LETROZOLE TABLETS, USP 2.5 MG [Suspect]
     Active Substance: LETROZOLE
     Indication: LEIOMYOSARCOMA
  2. DOXORUBICIN HYDROCHLORIDE LIPOSOME INJECTION 20 MG/10 ML (2 MG/ML) AND [Suspect]
     Active Substance: DOXORUBICIN HYDROCHLORIDE
     Indication: LEIOMYOSARCOMA
  3. IFOSFAMIDE. [Suspect]
     Active Substance: IFOSFAMIDE
     Indication: LEIOMYOSARCOMA
  4. OLARATUMA [Suspect]
     Active Substance: OLARATUMAB
     Indication: LEIOMYOSARCOMA
  5. DOCETAXEL. [Suspect]
     Active Substance: DOCETAXEL
     Indication: LEIOMYOSARCOMA
  6. GEMCITABINE. [Suspect]
     Active Substance: GEMCITABINE
     Indication: LEIOMYOSARCOMA

REACTIONS (7)
  - Skin turgor decreased [Unknown]
  - Nephropathy toxic [Recovering/Resolving]
  - Fanconi syndrome [Recovering/Resolving]
  - Tachycardia [Recovering/Resolving]
  - Acidosis [Recovering/Resolving]
  - Mucosal inflammation [Unknown]
  - Nephrogenic diabetes insipidus [Recovering/Resolving]
